FAERS Safety Report 20254848 (Version 4)
Quarter: 2022Q1

REPORT INFORMATION
  Report Type: Report from Study
  Country: DE (occurrence: DE)
  Receive Date: 20211230
  Receipt Date: 20220315
  Transmission Date: 20220423
  Serious: Yes (Death, Life-Threatening, Hospitalization)
  Sender: FDA-Public Use
  Company Number: DE-ONCOPEPPR-00903

PATIENT
  Age: 49 Year
  Sex: Female

DRUGS (9)
  1. MELPHALAN FLUFENAMIDE HYDROCHLORIDE [Suspect]
     Active Substance: MELPHALAN FLUFENAMIDE HYDROCHLORIDE
     Indication: Plasma cell myeloma
     Dosage: 1-0-0
     Route: 042
     Dates: start: 20211210, end: 20211210
  2. DEXAMETHASONE [Suspect]
     Active Substance: DEXAMETHASONE
     Indication: Plasma cell myeloma
     Dosage: 1-0-0
     Route: 050
     Dates: start: 20211210, end: 20211210
  3. 1198443 (GLOBALC3Sep21): Aciclovir [Concomitant]
     Indication: Prophylaxis
     Dosage: 1-0-1
     Route: 048
     Dates: start: 20211220, end: 20211222
  4. 3170987 (GLOBALC3Sep21): Beloc ZOK [Concomitant]
     Indication: Hypertension
     Dates: start: 202112
  5. 3536319 (GLOBALC3Sep21): Cotrim forte [Concomitant]
     Indication: Prophylaxis
     Dosage: 1-0-0
     Route: 048
     Dates: start: 20210222, end: 20211222
  6. 1210190 (GLOBALC3Sep21): MST ret. [Concomitant]
     Dosage: 70-0-50MG
     Dates: start: 20191107, end: 20211220
  7. 1210190 (GLOBALC3Sep21): MST ret. [Concomitant]
     Dosage: 70-0-50MG
     Dates: start: 20191107, end: 20211220
  8. 1253406 (GLOBALC3Sep21): Torem [Concomitant]
     Dosage: 1-0-0
     Dates: start: 20191110, end: 20211222
  9. 1240709 (GLOBALC3Sep21): Metoprolol [Concomitant]
     Dosage: 1-0-1
     Dates: start: 20210215, end: 20211222

REACTIONS (2)
  - Sepsis [Fatal]
  - Pancytopenia [Not Recovered/Not Resolved]

NARRATIVE: CASE EVENT DATE: 20211220
